FAERS Safety Report 7623851-9 (Version None)
Quarter: 2011Q3

REPORT INFORMATION
  Report Type: 
  Country: None (occurrence: None)
  Receive Date: 20110720
  Receipt Date: 20110716
  Transmission Date: 20111222
  Serious: No
  Sender: FDA-Public Use
  Company Number: US-PFIZER INC-2011161154

PATIENT
  Sex: Female
  Weight: 72.562 kg

DRUGS (2)
  1. LOVASTATIN [Concomitant]
     Indication: BLOOD CHOLESTEROL INCREASED
     Dosage: UNK
  2. PREMARIN [Suspect]
     Indication: VAGINAL DISORDER
     Dosage: UNK
     Route: 067
     Dates: start: 20110601

REACTIONS (2)
  - PAIN IN EXTREMITY [None]
  - MUSCULOSKELETAL PAIN [None]
